FAERS Safety Report 10261832 (Version 3)
Quarter: 2014Q3

REPORT INFORMATION
  Report Type: Spontaneous
  Country: US (occurrence: US)
  Receive Date: 20140626
  Receipt Date: 20140731
  Transmission Date: 20150326
  Serious: Yes (Other)
  Sender: FDA-Public Use
  Company Number: US-PFIZER INC-2005080140

PATIENT
  Sex: Female

DRUGS (1)
  1. CELEBREX [Suspect]
     Active Substance: CELECOXIB
     Dosage: 400 MG, UNK

REACTIONS (8)
  - Back disorder [Unknown]
  - Fibromyalgia [Unknown]
  - Vomiting [Unknown]
  - Arthropathy [Unknown]
  - Osteoporosis [Unknown]
  - Fracture [Unknown]
  - Malaise [Unknown]
  - Systemic lupus erythematosus [Unknown]
